FAERS Safety Report 5288800-X (Version None)
Quarter: 2007Q2

REPORT INFORMATION
  Report Type: 
  Country: None (occurrence: None)
  Receive Date: 20070405
  Receipt Date: 20070326
  Transmission Date: 20071010
  Serious: Yes (Death, Other)
  Sender: FDA-Public Use
  Company Number: GB-ELI_LILLY_AND_COMPANY-GB200703003045

PATIENT
  Age: 91 Year
  Sex: Female

DRUGS (2)
  1. CYMBALTA [Suspect]
     Indication: DEPRESSION
     Dosage: 60 MG, DAILY (1/D)
     Route: 048
     Dates: start: 20070110
  2. DIGOXIN [Concomitant]
     Indication: ATRIAL FIBRILLATION

REACTIONS (2)
  - CARDIAC ARREST [None]
  - DRUG INEFFECTIVE [None]
